FAERS Safety Report 15363292 (Version 1)
Quarter: 2018Q3

REPORT INFORMATION
  Report Type: Spontaneous
  Country: US (occurrence: US)
  Receive Date: 20180907
  Receipt Date: 20180907
  Transmission Date: 20181010
  Serious: Yes (Other)
  Sender: FDA-Public Use
  Company Number: US-009507513-2009SP035358

PATIENT
  Age: 22 Year
  Sex: Female
  Weight: 70.76 kg

DRUGS (2)
  1. IMPLANON [Suspect]
     Active Substance: ETONOGESTREL
     Indication: PRODUCT USED FOR UNKNOWN INDICATION
     Dosage: 1 DF, UNK
     Dates: start: 20070207, end: 20091106
  2. RIFAMPIN. [Interacting]
     Active Substance: RIFAMPIN

REACTIONS (5)
  - Pelvic pain [Unknown]
  - Drug interaction [Unknown]
  - Pregnancy with implant contraceptive [Unknown]
  - Cellulitis [Unknown]
  - Abscess [Unknown]

NARRATIVE: CASE EVENT DATE: 2009
